FAERS Safety Report 21002273 (Version 2)
Quarter: 2022Q3

REPORT INFORMATION
  Report Type: Spontaneous
  Country: MX (occurrence: MX)
  Receive Date: 20220624
  Receipt Date: 20220705
  Transmission Date: 20221027
  Serious: Yes (Death, Other)
  Sender: FDA-Public Use
  Company Number: MX-PFIZER INC-PV202200005776

PATIENT
  Sex: Female

DRUGS (2)
  1. AVIBACTAM SODIUM\CEFTAZIDIME [Suspect]
     Active Substance: AVIBACTAM SODIUM\CEFTAZIDIME
     Indication: Pseudomonas infection
     Dosage: UNK
     Dates: start: 20220610
  2. COLISTIN [Concomitant]
     Active Substance: COLISTIN
     Dosage: UNK
     Dates: start: 20220615

REACTIONS (3)
  - Pathogen resistance [Fatal]
  - Renal failure [Fatal]
  - Pyrexia [Fatal]

NARRATIVE: CASE EVENT DATE: 20220611
